FAERS Safety Report 8068404-6 (Version None)
Quarter: 2012Q1

REPORT INFORMATION
  Report Type: 
  Country: None (occurrence: None)
  Receive Date: 20120124
  Receipt Date: 20111026
  Transmission Date: 20120608
  Serious: No
  Sender: FDA-Public Use
  Company Number: US-AMGEN-USASP2011055505

PATIENT
  Age: 70 Year
  Sex: Female

DRUGS (3)
  1. PREVACID [Concomitant]
  2. PROLIA [Suspect]
     Indication: OSTEOPOROSIS POSTMENOPAUSAL
     Dosage: UNK UNK, Q6MO
     Dates: start: 20110501
  3. EVISTA [Concomitant]

REACTIONS (6)
  - NERVOUSNESS [None]
  - ANGER [None]
  - FEELING ABNORMAL [None]
  - EMOTIONAL DISORDER [None]
  - TEARFULNESS [None]
  - ANXIETY [None]
